FAERS Safety Report 17038184 (Version 2)
Quarter: 2019Q4

REPORT INFORMATION
  Report Type: Spontaneous
  Country: DE (occurrence: DE)
  Receive Date: 20191115
  Receipt Date: 20191203
  Transmission Date: 20200122
  Serious: Yes (Life-Threatening, Other)
  Sender: FDA-Public Use
  Company Number: DE-ASTRAZENECA-2019SF62208

PATIENT
  Age: 68 Year

DRUGS (7)
  1. BISOPROLOL [Concomitant]
     Active Substance: BISOPROLOL
  2. BYDUREON [Suspect]
     Active Substance: EXENATIDE
     Route: 065
  3. VALSARTAN. [Concomitant]
     Active Substance: VALSARTAN
  4. METFORMIN [Concomitant]
     Active Substance: METFORMIN HYDROCHLORIDE
  5. AMLODIPIN [Concomitant]
     Active Substance: AMLODIPINE BESYLATE
  6. ACETYLSALICYLIC ACID [Concomitant]
     Active Substance: ASPIRIN
  7. DEKRISTOL [Concomitant]
     Active Substance: CHOLECALCIFEROL

REACTIONS (6)
  - Renal impairment [Unknown]
  - Atrial fibrillation [Unknown]
  - Scrotal oedema [Unknown]
  - Sepsis [Unknown]
  - Decubitus ulcer [Unknown]
  - Ejection fraction abnormal [Unknown]
